FAERS Safety Report 25608916 (Version 1)
Quarter: 2025Q3

REPORT INFORMATION
  Report Type: Spontaneous
  Country: US (occurrence: US)
  Receive Date: 20250726
  Receipt Date: 20250726
  Transmission Date: 20251021
  Serious: Yes (Death, Other)
  Sender: AMGEN
  Company Number: US-AMGEN-USASP2025141398

PATIENT

DRUGS (1)
  1. PREDNISONE [Suspect]
     Active Substance: PREDNISONE
     Indication: Graft versus host disease in gastrointestinal tract
     Dosage: 2 MILLIGRAM/KILOGRAM, QD
     Route: 065

REACTIONS (21)
  - Graft versus host disease in gastrointestinal tract [Fatal]
  - Acute myeloid leukaemia [Fatal]
  - Post transplant lymphoproliferative disorder [Unknown]
  - Epstein-Barr viraemia [Unknown]
  - Cytomegalovirus viraemia [Unknown]
  - Cystitis haemorrhagic [Unknown]
  - Gastroenteritis norovirus [Unknown]
  - Pneumonia influenzal [Unknown]
  - Pulmonary nocardiosis [Unknown]
  - Pneumonia [Unknown]
  - Pneumonia staphylococcal [Unknown]
  - Bacteraemia [Unknown]
  - Pelvic abscess [Unknown]
  - Cellulitis [Unknown]
  - Liver disorder [Unknown]
  - Adenovirus infection [Unknown]
  - Treatment failure [Unknown]
  - Human herpesvirus 6 infection reactivation [Unknown]
  - Respiratory syncytial virus infection [Unknown]
  - Influenza [Unknown]
  - Herpes simplex [Unknown]
